FAERS Safety Report 25158338 (Version 2)
Quarter: 2025Q2

REPORT INFORMATION
  Report Type: Spontaneous
  Country: US (occurrence: US)
  Receive Date: 20250404
  Receipt Date: 20250620
  Transmission Date: 20250716
  Serious: Yes (Hospitalization, Other)
  Sender: GRAVITI PHARMACEUTICALS PRIVATE LIMITED
  Company Number: US-GRAVITIPHARMA-GRA-2503-US-LIT-0202

PATIENT
  Age: 85 Year
  Sex: Female

DRUGS (3)
  1. CARVEDILOL [Suspect]
     Active Substance: CARVEDILOL
     Indication: Hypertension
     Route: 065
  2. HYDROCHLOROTHIAZIDE [Suspect]
     Active Substance: HYDROCHLOROTHIAZIDE
     Indication: Hypertension
     Route: 065
  3. VALSARTAN [Suspect]
     Active Substance: VALSARTAN
     Indication: Hypertension
     Route: 065

REACTIONS (2)
  - BRASH syndrome [Recovered/Resolved]
  - Drug interaction [Unknown]
